FAERS Safety Report 10415240 (Version 1)
Quarter: 2014Q3

REPORT INFORMATION
  Report Type: Report from Study
  Country: US (occurrence: US)
  Receive Date: 20140828
  Receipt Date: 20140828
  Transmission Date: 20150326
  Serious: Yes (Other)
  Sender: FDA-Public Use
  Company Number: PHEH2014US016684

PATIENT
  Age: 12 Year
  Sex: Male
  Weight: 63.94 kg

DRUGS (10)
  1. ONFI [Concomitant]
     Active Substance: CLOBAZAM
     Indication: CONVULSION
     Dosage: 30 MG, 10 MG IN AM AND 20 MG IN PM
  2. TRAZODONE [Concomitant]
     Active Substance: TRAZODONE HYDROCHLORIDE
     Dosage: 100 MG, UNK
     Route: 048
  3. BACLOFEN. [Concomitant]
     Active Substance: BACLOFEN
     Indication: MUSCLE SPASMS
     Dosage: 20 MG, 5 MG IN AM, 5 MG IN AFTERNOON, 10 MG IN EVENING
     Route: 048
  4. VERSED [Concomitant]
     Active Substance: MIDAZOLAM HYDROCHLORIDE
     Indication: CONVULSION
     Dosage: 5 MG, PRN
  5. PRILOSEC [Concomitant]
     Active Substance: OMEPRAZOLE MAGNESIUM
     Indication: GASTROOESOPHAGEAL REFLUX DISEASE
     Dosage: 20 MG/KG, QD
     Route: 048
  6. THORAZINE [Concomitant]
     Active Substance: CHLORPROMAZINE
     Dosage: 50 MG, UNK
     Route: 048
  7. COGENTIN [Concomitant]
     Active Substance: BENZTROPINE MESYLATE
     Indication: EXTRAPYRAMIDAL DISORDER
     Dosage: 1 MG, BID
  8. AFINITOR [Suspect]
     Active Substance: EVEROLIMUS
     Dosage: 7.5 MG, QD
     Route: 048
  9. VITAMIN D [Concomitant]
     Active Substance: CHOLECALCIFEROL
     Indication: OSTEOPOROSIS
     Dosage: 400 IU, BID
     Route: 048
  10. GAMUNEX [Concomitant]
     Active Substance: HUMAN IMMUNOGLOBULIN G
     Indication: IMMUNODEFICIENCY
     Route: 042

REACTIONS (3)
  - Fibroma [Unknown]
  - Erythema [Unknown]
  - Onychomadesis [Unknown]

NARRATIVE: CASE EVENT DATE: 20140816
